FAERS Safety Report 9674871 (Version 1)
Quarter: 2013Q4

REPORT INFORMATION
  Report Type: Spontaneous
  Country: US (occurrence: None)
  Receive Date: 20131106
  Receipt Date: 20131106
  Transmission Date: 20140711
  Serious: Yes (Life-Threatening, Hospitalization, Other)
  Sender: FDA-Public Use
  Company Number: None

PATIENT
  Age: 57 Year
  Sex: Male
  Weight: 77.3 kg

DRUGS (7)
  1. HUMIRA [Suspect]
     Indication: RHEUMATOID ARTHRITIS
     Route: 058
     Dates: start: 200402, end: 201308
  2. METHOTREXATE [Concomitant]
  3. LIPITOR [Concomitant]
  4. LEVOTHYROXINE [Concomitant]
  5. ASPIRIN [Concomitant]
  6. FOSAMAX [Concomitant]
  7. LOVAZA [Concomitant]

REACTIONS (3)
  - Biopsy tongue abnormal [None]
  - Squamous cell carcinoma [None]
  - Tongue dysplasia [None]
